FAERS Safety Report 20165254 (Version 1)
Quarter: 2021Q4

REPORT INFORMATION
  Report Type: Spontaneous
  Country: DE (occurrence: None)
  Receive Date: 20211209
  Receipt Date: 20211209
  Transmission Date: 20220303
  Serious: Yes (Other)
  Sender: FDA-Public Use
  Company Number: 2021A855902

PATIENT
  Sex: Female

DRUGS (1)
  1. SYMBICORT [Suspect]
     Active Substance: BUDESONIDE\FORMOTEROL FUMARATE DIHYDRATE
     Indication: Asthma
     Dosage: 320 / 9 UG UNKNOWN UNKNOWN
     Route: 055
     Dates: start: 202006

REACTIONS (3)
  - Gait disturbance [Unknown]
  - Product packaging quantity issue [Unknown]
  - Device use issue [Unknown]
